FAERS Safety Report 10914610 (Version 9)
Quarter: 2015Q4

REPORT INFORMATION
  Report Type: Spontaneous
  Country: US (occurrence: US)
  Receive Date: 20150313
  Receipt Date: 20151012
  Transmission Date: 20160304
  Serious: Yes (Death, Other)
  Sender: FDA-Public Use
  Company Number: US-GLAXOSMITHKLINE-US2015GSK033389

PATIENT
  Age: 54 Year
  Sex: Male
  Weight: 71.66 kg

DRUGS (10)
  1. FLOLAN [Suspect]
     Active Substance: EPOPROSTENOL SODIUM
     Dosage: 40 NG/KG/MIN, 1.5 MG VIAL, 75,000 CONC, 79 PUMP RATE
     Route: 042
  2. REMODULIN [Suspect]
     Active Substance: TREPROSTINIL
     Indication: PULMONARY HYPERTENSION
     Dosage: 2.5 MG/ML, UNKNOWN
     Route: 058
     Dates: start: 200810, end: 20150310
  3. FLOLAN [Suspect]
     Active Substance: EPOPROSTENOL SODIUM
     Indication: PULMONARY HYPERTENSION
     Dosage: 35 NG/KG/MIN CONTINUOUSLY
     Route: 042
  4. WARFARIN [Concomitant]
     Active Substance: WARFARIN
  5. REMODULIN [Suspect]
     Active Substance: TREPROSTINIL
     Dosage: 0.059 NG/KG/MIN CONINUOUSLY
     Route: 042
     Dates: start: 20091104
  6. ADCIRCA [Concomitant]
     Active Substance: TADALAFIL
  7. VELETRI [Concomitant]
     Active Substance: EPOPROSTENOL
  8. FLOLAN [Suspect]
     Active Substance: EPOPROSTENOL SODIUM
     Indication: PULMONARY ARTERIAL HYPERTENSION
     Dosage: 15 NG/KG/MIN, CO
     Route: 042
     Dates: start: 20150306
  9. REMODULIN [Suspect]
     Active Substance: TREPROSTINIL
     Dosage: UNK
     Dates: start: 20150508
  10. COUMADIN [Concomitant]
     Active Substance: WARFARIN SODIUM

REACTIONS (24)
  - Diarrhoea [Unknown]
  - Decreased appetite [Unknown]
  - Cyanosis [Unknown]
  - Ascites [Recovered/Resolved]
  - Dialysis [Unknown]
  - Asthenia [Unknown]
  - Dyspnoea exertional [Unknown]
  - Hypotension [Not Recovered/Not Resolved]
  - Somnolence [Unknown]
  - Vomiting [Not Recovered/Not Resolved]
  - Oedema peripheral [Unknown]
  - Malaise [Unknown]
  - Pulmonary arterial hypertension [Fatal]
  - Oedema [Recovered/Resolved]
  - Catheter site haemorrhage [Unknown]
  - Gastric disorder [Unknown]
  - Fall [Unknown]
  - Muscular weakness [Unknown]
  - Depression [Unknown]
  - Emotional distress [Unknown]
  - Dizziness [Unknown]
  - Dyspnoea [Unknown]
  - Nausea [Not Recovered/Not Resolved]
  - Fatigue [Not Recovered/Not Resolved]

NARRATIVE: CASE EVENT DATE: 201503
